FAERS Safety Report 18019599 (Version 1)
Quarter: 2020Q3

REPORT INFORMATION
  Report Type: Spontaneous
  Country: US (occurrence: US)
  Receive Date: 20200714
  Receipt Date: 20200714
  Transmission Date: 20201103
  Serious: Yes (Other)
  Sender: FDA-Public Use
  Company Number: None

PATIENT
  Age: 41 Year
  Sex: Female
  Weight: 87.75 kg

DRUGS (3)
  1. EXCEDRIN FOR MIGRAINES [Concomitant]
  2. LAMOTRIGINE EXTENDED RELEASE TABLETS USP, 300MG [Suspect]
     Active Substance: LAMOTRIGINE
     Indication: EPILEPSY
     Dosage: ?          QUANTITY:30 TABLET(S);?
     Route: 048
     Dates: start: 20200712, end: 20200713
  3. ALFALFA [Concomitant]
     Active Substance: ALFALFA

REACTIONS (13)
  - Therapy cessation [None]
  - Product substitution issue [None]
  - Fear [None]
  - Product formulation issue [None]
  - Balance disorder [None]
  - Gait disturbance [None]
  - Dizziness [None]
  - Dysarthria [None]
  - Headache [None]
  - Chills [None]
  - Visual acuity reduced [None]
  - Cognitive disorder [None]
  - Nausea [None]

NARRATIVE: CASE EVENT DATE: 20200713
